FAERS Safety Report 15159314 (Version 1)
Quarter: 2018Q3

REPORT INFORMATION
  Report Type: Spontaneous
  Country: US (occurrence: US)
  Receive Date: 20180718
  Receipt Date: 20180718
  Transmission Date: 20181010
  Serious: Yes (Hospitalization, Other)
  Sender: FDA-Public Use
  Company Number: US-JNJFOC-20180719346

PATIENT
  Age: 39 Year
  Sex: Male

DRUGS (1)
  1. INVOKANA [Suspect]
     Active Substance: CANAGLIFLOZIN
     Indication: PRODUCT USED FOR UNKNOWN INDICATION
     Route: 048
     Dates: start: 20160518

REACTIONS (3)
  - Cellulitis [Recovering/Resolving]
  - Toe amputation [Unknown]
  - Diabetic foot [Recovering/Resolving]

NARRATIVE: CASE EVENT DATE: 201610
